FAERS Safety Report 8492338-6 (Version None)
Quarter: 2012Q2

REPORT INFORMATION
  Report Type: 
  Country: None (occurrence: None)
  Receive Date: 20120629
  Receipt Date: 20120629
  Transmission Date: 20120825
  Serious: No
  Sender: FDA-Public Use
  Company Number: None

PATIENT
  Age: 62 Year
  Sex: Female

DRUGS (7)
  1. INSULIN GLARGINE [Concomitant]
  2. CYANOCOBALAMIN [Concomitant]
  3. CALCITRIOL [Concomitant]
  4. LENALIDOMIDE [Concomitant]
  5. DEXAMETHASONE [Concomitant]
  6. INSULIN ASPART [Concomitant]
  7. REVLIMID [Suspect]
     Indication: MULTIPLE MYELOMA
     Dosage: 15 MG QOD X14D ORAL
     Route: 048
     Dates: start: 20101112

REACTIONS (1)
  - DIARRHOEA [None]
